FAERS Safety Report 4449422-3 (Version None)
Quarter: 2004Q3

REPORT INFORMATION
  Report Type: 
  Country: None (occurrence: None)
  Receive Date: 20040910
  Receipt Date: 20040830
  Transmission Date: 20050211
  Serious: Yes (Hospitalization)
  Sender: FDA-Public Use
  Company Number: A0416353A

PATIENT
  Age: 61 Year
  Sex: Female
  Weight: 70.7611 kg

DRUGS (25)
  1. AVANDIA [Suspect]
     Indication: DIABETES MELLITUS NON-INSULIN-DEPENDENT
     Dosage: ORAL
     Route: 048
     Dates: start: 19990825, end: 20010101
  2. CARVEDILOL [Concomitant]
  3. AMIODARONE [Concomitant]
  4. MERTFORMIN HYDROCHLORIDE [Concomitant]
  5. THYROXINE SODIUM [Concomitant]
  6. LEVOTHYROXINE SODIUM [Concomitant]
  7. CONJUGATED ESTROGENS [Concomitant]
  8. ASPIRIN [Concomitant]
  9. BETA- BLOCKER [Concomitant]
  10. ENALAPRIL MALEATE [Concomitant]
  11. FUROSEMIDE [Concomitant]
  12. PARACETAMOL [Concomitant]
  13. IBUPROFEN [Concomitant]
  14. ATORVASTATIN CALCIUM [Concomitant]
  15. SIMVASTATIN [Concomitant]
  16. NADOLOL [Concomitant]
  17. POTASSIUM SALT [Concomitant]
  18. GLIPIZIDE [Concomitant]
  19. WARFARIN SODIUM [Concomitant]
  20. INT./LONG-ACTING INSULIN [Concomitant]
  21. NICOTINIC ACID [Concomitant]
  22. ISOSORBIDE MONONITRATE [Concomitant]
  23. PRAVASTATIN SODIUM [Concomitant]
  24. SERTRALINE HYDROCHLORIDE [Concomitant]
  25. NATEGLINIDE [Concomitant]

REACTIONS (36)
  - ANGINA PECTORIS [None]
  - ATRIAL FIBRILLATION [None]
  - CARDIAC FAILURE CONGESTIVE [None]
  - CHEST PAIN [None]
  - CORONARY ARTERY ATHEROSCLEROSIS [None]
  - CORONARY ARTERY OCCLUSION [None]
  - CORONARY ARTERY STENOSIS [None]
  - CYSTITIS [None]
  - DIABETIC RETINAL OEDEMA [None]
  - EJECTION FRACTION DECREASED [None]
  - EYELID PTOSIS [None]
  - FATIGUE [None]
  - HAEMOLYTIC ANAEMIA [None]
  - HEART INJURY [None]
  - HEART RATE IRREGULAR [None]
  - HEPATITIS [None]
  - HYPERLIPIDAEMIA [None]
  - HYPOTHYROIDISM [None]
  - IMPAIRED HEALING [None]
  - INJURY [None]
  - ISCHAEMIA [None]
  - LEFT VENTRICULAR FAILURE [None]
  - LOW CARDIAC OUTPUT SYNDROME [None]
  - MITRAL VALVE INCOMPETENCE [None]
  - MYOCARDIAL INFARCTION [None]
  - OSTEOARTHRITIS [None]
  - OSTEOPOROSIS [None]
  - PNEUMONIA [None]
  - PULMONARY HYPERTENSION [None]
  - ROAD TRAFFIC ACCIDENT [None]
  - SLEEP APNOEA SYNDROME [None]
  - STRESS SYMPTOMS [None]
  - SUPRAVENTRICULAR TACHYCARDIA [None]
  - URINARY TRACT INFECTION [None]
  - VENTRICULAR EXTRASYSTOLES [None]
  - VISUAL DISTURBANCE [None]
